FAERS Safety Report 11141990 (Version 1)
Quarter: 2015Q2

REPORT INFORMATION
  Report Type: Spontaneous
  Country: US (occurrence: US)
  Receive Date: 20150527
  Receipt Date: 20150527
  Transmission Date: 20150821
  Serious: Yes (Other)
  Sender: FDA-Public Use
  Company Number: US-GLAXOSMITHKLINE-US2015GSK071209

PATIENT
  Sex: Female

DRUGS (2)
  1. XENICAL [Suspect]
     Active Substance: ORLISTAT
     Indication: PRODUCT USED FOR UNKNOWN INDICATION
     Route: 048
  2. ALLI [Suspect]
     Active Substance: ORLISTAT
     Indication: PRODUCT USED FOR UNKNOWN INDICATION
     Route: 048

REACTIONS (12)
  - Gastric disorder [Unknown]
  - Dyspepsia [Unknown]
  - Nail disorder [Unknown]
  - Skin disorder [Unknown]
  - Liver disorder [Unknown]
  - Malabsorption [Unknown]
  - Nail discolouration [Unknown]
  - Ocular icterus [Unknown]
  - Gastric infection [Unknown]
  - Helicobacter infection [Unknown]
  - Hypovitaminosis [Unknown]
  - Ill-defined disorder [Unknown]
